FAERS Safety Report 14029945 (Version 3)
Quarter: 2017Q4

REPORT INFORMATION
  Report Type: Report from Study
  Country: CO (occurrence: CO)
  Receive Date: 20171002
  Receipt Date: 20171029
  Transmission Date: 20180321
  Serious: Yes (Death, Hospitalization)
  Sender: FDA-Public Use
  Company Number: PHHY2017CO144110

PATIENT
  Sex: Male
  Weight: 60 kg

DRUGS (1)
  1. ENTRESTO [Suspect]
     Active Substance: SACUBITRIL\VALSARTAN
     Indication: CARDIAC FAILURE
     Dosage: 50 MG (24MG OF SACUBITRIL AND 26MG OF VALSARTAN), Q12H
     Route: 048
     Dates: start: 20170314

REACTIONS (7)
  - Blood glucose decreased [Unknown]
  - Hepatorenal syndrome [Fatal]
  - Jaundice [Fatal]
  - Loss of consciousness [Unknown]
  - Pulmonary tuberculosis [Fatal]
  - Hypoaesthesia [Unknown]
  - Feeling abnormal [Unknown]
